FAERS Safety Report 4529693-5 (Version None)
Quarter: 2004Q4

REPORT INFORMATION
  Report Type: 
  Country: None (occurrence: None)
  Receive Date: 20041130
  Receipt Date: 20040825
  Transmission Date: 20050328
  Serious: No
  Sender: FDA-Public Use
  Company Number: 702258

PATIENT
  Sex: Female

DRUGS (1)
  1. AMEVIVE [Suspect]
     Indication: PSORIASIS

REACTIONS (5)
  - CELLULITIS [None]
  - EXCORIATION [None]
  - FALL [None]
  - LIMB INJURY [None]
  - SKIN ULCER [None]
